FAERS Safety Report 7724307-5 (Version None)
Quarter: 2011Q3

REPORT INFORMATION
  Report Type: 
  Country: None (occurrence: None)
  Receive Date: 20110901
  Receipt Date: 20110822
  Transmission Date: 20111222
  Serious: Yes (Death)
  Sender: FDA-Public Use
  Company Number: NO-NOVOPROD-328040

PATIENT

DRUGS (14)
  1. NOVOLOG [Suspect]
     Indication: DIABETES MELLITUS
     Dosage: 6-8 IE PER DAY
     Route: 058
     Dates: start: 20110303, end: 20110311
  2. HALDOL [Concomitant]
  3. CALCIGRAN FORTE [Concomitant]
     Route: 048
  4. BUMETANIDE [Concomitant]
     Route: 048
  5. ZYRTEC [Concomitant]
     Route: 048
  6. PANTOPRAZOLE [Concomitant]
     Route: 048
  7. TRIOBE                             /01079901/ [Concomitant]
     Route: 048
  8. METOPROLOL TARTRATE [Concomitant]
     Route: 048
  9. PREDNISOLONE [Concomitant]
     Route: 048
     Dates: start: 20110301
  10. HUMALOG [Concomitant]
     Route: 058
  11. SIMVASTATIN [Concomitant]
     Route: 048
  12. ACETAMINOPHEN [Concomitant]
     Route: 048
  13. ZOLPIDEM TARTRATE [Concomitant]
     Route: 048
  14. NORVASC [Suspect]
     Indication: HYPERTENSION
     Route: 048
     Dates: start: 20110315, end: 20110403

REACTIONS (1)
  - TOXIC EPIDERMAL NECROLYSIS [None]
